FAERS Safety Report 11820604 (Version 1)
Quarter: 2015Q4

REPORT INFORMATION
  Report Type: Spontaneous
  Country: PT (occurrence: PT)
  Receive Date: 20151210
  Receipt Date: 20151210
  Transmission Date: 20160305
  Serious: Yes (Death, Hospitalization, Other)
  Sender: FDA-Public Use
  Company Number: PT-ACTAVIS-2015-27017

PATIENT
  Age: 65 Year
  Sex: Female

DRUGS (4)
  1. GEMCITABINE [Suspect]
     Active Substance: GEMCITABINE\GEMCITABINE HYDROCHLORIDE
     Indication: OVARIAN CANCER
     Dosage: UNK
     Route: 065
  2. PACLITAXEL (UNKNOWN) [Suspect]
     Active Substance: PACLITAXEL
     Indication: OVARIAN CANCER
     Dosage: UNK
     Route: 065
  3. TOPOTECAN (UNKNOWN) [Suspect]
     Active Substance: TOPOTECAN\TOPOTECAN HYDROCHLORIDE
     Indication: OVARIAN CANCER
     Dosage: UNK
     Route: 065
     Dates: start: 201202
  4. DOXORUBICIN (UNKNOWN) [Suspect]
     Active Substance: DOXORUBICIN
     Indication: OVARIAN CANCER
     Dosage: UNK
     Route: 065

REACTIONS (4)
  - Haematotoxicity [Fatal]
  - Toxicity to various agents [Unknown]
  - Gastrointestinal toxicity [Unknown]
  - Palmar-plantar erythrodysaesthesia syndrome [Unknown]
